FAERS Safety Report 6990504-X (Version None)
Quarter: 2010Q3

REPORT INFORMATION
  Report Type: 
  Country: None (occurrence: None)
  Receive Date: 20100916
  Receipt Date: 20100702
  Transmission Date: 20110219
  Serious: Yes (Other)
  Sender: FDA-Public Use
  Company Number: US-PFIZER INC-2010005328

PATIENT
  Sex: Female
  Weight: 54.42 kg

DRUGS (4)
  1. LYRICA [Suspect]
     Indication: NERVE INJURY
     Dosage: 50MG IN THE MORNING, 50MG IN THE AFTERNOON AND 100MG AT NIGHT
     Route: 048
     Dates: start: 20080201, end: 20100702
  2. XANAX [Concomitant]
     Dosage: 1 MG, UNK
  3. CYMBALTA [Concomitant]
     Dosage: 60 MG, UNK
  4. MARINOL [Concomitant]
     Dosage: 0.5 MG, 2X/DAY

REACTIONS (2)
  - CARNITINE DEFICIENCY [None]
  - PALPITATIONS [None]
